FAERS Safety Report 12265176 (Version 1)
Quarter: 2016Q2

REPORT INFORMATION
  Report Type: Spontaneous
  Country: GB (occurrence: GB)
  Receive Date: 20160413
  Receipt Date: 20160413
  Transmission Date: 20160815
  Serious: Yes (Hospitalization)
  Sender: FDA-Public Use
  Company Number: GB-JAZZ-2016-GB-006373

PATIENT
  Age: 4 Month

DRUGS (2)
  1. DEFITELIO [Suspect]
     Active Substance: DEFIBROTIDE SODIUM
     Indication: PROPHYLAXIS
     Dosage: 6.25 MG/KG, QD
     Route: 042
  2. DEFITELIO [Suspect]
     Active Substance: DEFIBROTIDE SODIUM
     Indication: THROMBOTIC MICROANGIOPATHY

REACTIONS (3)
  - Product use issue [Unknown]
  - Neurological decompensation [Recovered/Resolved]
  - Thrombotic microangiopathy [Recovering/Resolving]
